FAERS Safety Report 7375076-2 (Version None)
Quarter: 2011Q1

REPORT INFORMATION
  Report Type: 
  Country: None (occurrence: None)
  Receive Date: 20110325
  Receipt Date: 20110314
  Transmission Date: 20110831
  Serious: Yes (Hospitalization)
  Sender: FDA-Public Use
  Company Number: US-SANOFI-AVENTIS-2011SA016406

PATIENT
  Age: 62 Year
  Sex: Male

DRUGS (9)
  1. OXALIPLATIN [Suspect]
     Route: 042
     Dates: start: 20101209, end: 20101209
  2. EPIRUBICIN [Suspect]
     Indication: GASTRIC CANCER
     Route: 042
     Dates: start: 20101028, end: 20101028
  3. EPIRUBICIN [Suspect]
     Route: 042
     Dates: start: 20101209, end: 20101209
  4. OXALIPLATIN [Suspect]
     Indication: GASTRIC CANCER
     Route: 042
     Dates: start: 20101028, end: 20101028
  5. BEVACIZUMAB [Suspect]
     Indication: GASTRIC CANCER
     Route: 042
     Dates: start: 20101028, end: 20101028
  6. BEVACIZUMAB [Suspect]
     Route: 042
     Dates: start: 20101118, end: 20101118
  7. CAPECITABINE [Suspect]
     Indication: GASTRIC CANCER
     Route: 042
     Dates: start: 20101028, end: 20101112
  8. CAPECITABINE [Suspect]
     Route: 042
     Dates: start: 20101209, end: 20101220
  9. IRON [Concomitant]
     Dates: start: 20101007

REACTIONS (2)
  - PULMONARY EMBOLISM [None]
  - ANGIOPATHY [None]
